FAERS Safety Report 19402852 (Version 1)
Quarter: 2021Q2

REPORT INFORMATION
  Report Type: Spontaneous
  Country: HU (occurrence: HU)
  Receive Date: 20210610
  Receipt Date: 20210610
  Transmission Date: 20210717
  Serious: Yes (Other)
  Sender: FDA-Public Use
  Company Number: HU-INCYTE CORPORATION-2021IN005123

PATIENT

DRUGS (6)
  1. CYCLOSPORINE. [Suspect]
     Active Substance: CYCLOSPORINE
     Indication: PRIMARY MYELOFIBROSIS
     Dosage: 100 MG, BID
     Route: 065
     Dates: start: 201707
  2. EXJADE [Suspect]
     Active Substance: DEFERASIROX
     Indication: PRIMARY MYELOFIBROSIS
     Dosage: 2?3 DF, QD
     Route: 065
  3. EXJADE [Suspect]
     Active Substance: DEFERASIROX
     Dosage: 2?3 DF, QD
     Route: 065
  4. DEFEROXAMINE [Suspect]
     Active Substance: DEFEROXAMINE MESYLATE
     Indication: PRIMARY MYELOFIBROSIS
     Dosage: UNK
     Route: 065
     Dates: start: 201707
  5. JAKAVI [Suspect]
     Active Substance: RUXOLITINIB
     Indication: PRIMARY MYELOFIBROSIS
     Dosage: 15 MG, BID
     Route: 065
  6. ASA [Concomitant]
     Active Substance: ASPIRIN
     Indication: PRODUCT USED FOR UNKNOWN INDICATION
     Dosage: 100 MG
     Route: 065

REACTIONS (11)
  - Cytogenetic abnormality [Unknown]
  - Erythroid series abnormal [Unknown]
  - Plasmacytosis [Unknown]
  - Erythropoiesis abnormal [Unknown]
  - Marrow hyperplasia [Unknown]
  - Thrombocytosis [Unknown]
  - Myelodysplastic syndrome [Unknown]
  - Dysplasia [Unknown]
  - Fibrosis [Unknown]
  - Myelofibrosis [Recovering/Resolving]
  - Bone marrow failure [Unknown]

NARRATIVE: CASE EVENT DATE: 201801
